FAERS Safety Report 18662571 (Version 1)
Quarter: 2020Q4

REPORT INFORMATION
  Report Type: Spontaneous
  Country: US (occurrence: US)
  Receive Date: 20201224
  Receipt Date: 20201224
  Transmission Date: 20210114
  Serious: Yes (Death, Hospitalization, Other)
  Sender: FDA-Public Use
  Company Number: US-ABBVIE-20K-163-3707065-00

PATIENT
  Age: 49 Year
  Sex: Male

DRUGS (2)
  1. VALPROIC ACID. [Suspect]
     Active Substance: VALPROIC ACID
     Route: 065
  2. VALPROIC ACID. [Suspect]
     Active Substance: VALPROIC ACID
     Indication: BIPOLAR I DISORDER
     Route: 065

REACTIONS (7)
  - Acute hepatic failure [Fatal]
  - Constipation [Fatal]
  - Pyrexia [Fatal]
  - Hepatomegaly [Fatal]
  - Headache [Fatal]
  - Chills [Fatal]
  - Nausea [Fatal]
